FAERS Safety Report 10158571 (Version 1)
Quarter: 2014Q2

REPORT INFORMATION
  Report Type: Spontaneous
  Country: US (occurrence: US)
  Receive Date: 20140507
  Receipt Date: 20140507
  Transmission Date: 20141212
  Serious: Yes (Death, Other)
  Sender: FDA-Public Use
  Company Number: PHHY2014US054187

PATIENT
  Sex: 0

DRUGS (1)
  1. RIBAVIRIN [Suspect]
     Indication: RESPIRATORY SYNCYTIAL VIRUS INFECTION
     Dosage: 600-800 MG, BID
     Route: 048

REACTIONS (4)
  - Acute graft versus host disease [Fatal]
  - Acute leukaemia [Fatal]
  - Lactic acidosis [Recovering/Resolving]
  - Haemolytic anaemia [Recovering/Resolving]
